FAERS Safety Report 9638769 (Version 2)
Quarter: 2013Q4

REPORT INFORMATION
  Report Type: Spontaneous
  Country: US (occurrence: US)
  Receive Date: 20131022
  Receipt Date: 20131022
  Transmission Date: 20140711
  Serious: No
  Sender: FDA-Public Use
  Company Number: US-BRISTOL-MYERS SQUIBB COMPANY-19199876

PATIENT
  Age: 61 Year
  Sex: Male
  Weight: 107.03 kg

DRUGS (10)
  1. ELIQUIS [Suspect]
     Indication: ATRIAL FIBRILLATION
     Route: 048
     Dates: start: 20130723
  2. ACARBOSE [Concomitant]
  3. CARVEDILOL [Concomitant]
  4. DIGOXIN [Concomitant]
  5. FUROSEMIDE [Concomitant]
  6. JANUVIA [Concomitant]
  7. METFORMIN [Concomitant]
     Dosage: 1DF= 10 UNITS NOS
  8. POTASSIUM CHLORIDE [Concomitant]
  9. SPIRONOLACTONE [Concomitant]
  10. LOSARTAN [Concomitant]

REACTIONS (1)
  - Upper respiratory tract infection [Recovered/Resolved]
